FAERS Safety Report 10214602 (Version 3)
Quarter: 2015Q4

REPORT INFORMATION
  Report Type: Spontaneous
  Country: FR (occurrence: FR)
  Receive Date: 20140603
  Receipt Date: 20151109
  Transmission Date: 20160304
  Serious: Yes (Hospitalization)
  Sender: FDA-Public Use
  Company Number: FR-009507513-1406FRA000335

PATIENT
  Age: 43 Year
  Sex: Male

DRUGS (20)
  1. STILNOX [Concomitant]
     Active Substance: ZOLPIDEM TARTRATE
     Dosage: DURATION: IN LONG TERM
     Route: 048
  2. FLUOROURACIL. [Suspect]
     Active Substance: FLUOROURACIL
     Dosage: 3RD CYCLE
     Dates: start: 20140414
  3. OXALIPLATIN. [Suspect]
     Active Substance: OXALIPLATIN
     Dosage: 3RD CYCLE
     Dates: start: 20140414
  4. FOLIC ACID. [Suspect]
     Active Substance: FOLIC ACID
     Dosage: 3RD CYCLE
     Dates: start: 20140414
  5. XANAX [Concomitant]
     Active Substance: ALPRAZOLAM
     Dosage: 0.5 MG, QD, DURATION: IN LONG TERM
     Route: 048
  6. POLARAMINE [Suspect]
     Active Substance: DEXCHLORPHENIRAMINE MALEATE
     Indication: HYPERSENSITIVITY
     Dosage: UNK
     Route: 042
     Dates: start: 20140401, end: 20140401
  7. ZOPHREN [Suspect]
     Active Substance: ONDANSETRON
     Indication: PREMEDICATION
     Dosage: UNK
     Route: 065
     Dates: start: 20140401, end: 20140401
  8. VECTIBIX [Suspect]
     Active Substance: PANITUMUMAB
     Dosage: UNK
     Dates: start: 20140414
  9. TRANXENE T-TAB [Suspect]
     Active Substance: CLORAZEPATE DIPOTASSIUM
     Indication: PREMEDICATION
     Dosage: UNK
     Route: 065
     Dates: start: 20140401, end: 20140401
  10. EMEND [Suspect]
     Active Substance: APREPITANT
     Dosage: UNK
     Route: 048
     Dates: start: 20140401, end: 20140401
  11. SMECTA [Concomitant]
     Active Substance: MONTMORILLONITE
     Dosage: DUATION: IN LONG TERM
     Route: 048
  12. OXYNORM [Concomitant]
     Active Substance: OXYCODONE HYDROCHLORIDE
     Dosage: 10 MG, DUATION: IN LONG TERM
     Route: 048
  13. ACETAMINOPHEN. [Concomitant]
     Active Substance: ACETAMINOPHEN
     Dosage: DURATION: IN LONG TERM
     Route: 065
  14. FLUOROURACIL. [Suspect]
     Active Substance: FLUOROURACIL
     Dosage: 2ND CYCLE
     Dates: start: 20140318, end: 20140318
  15. FOLIC ACID. [Suspect]
     Active Substance: FOLIC ACID
     Dosage: 2ND CYCLE
     Dates: start: 20140318, end: 20140318
  16. PRIMPERAN [Suspect]
     Active Substance: METOCLOPRAMIDE HYDROCHLORIDE
     Dosage: UNK
     Route: 048
     Dates: start: 20140401, end: 20140401
  17. OXALIPLATIN. [Suspect]
     Active Substance: OXALIPLATIN
     Dosage: 2ND CYCLE
     Dates: start: 20140318, end: 20140318
  18. ERBITUX [Suspect]
     Active Substance: CETUXIMAB
     Dosage: 2ND CYCLE
     Dates: start: 20140318
  19. IMODIUM [Concomitant]
     Active Substance: LOPERAMIDE HYDROCHLORIDE
     Dosage: DUATION: IN LONG TERM
     Route: 048
  20. VERSATIS [Concomitant]
     Active Substance: LIDOCAINE
     Dosage: DUATION: IN LONG TERM
     Route: 003

REACTIONS (7)
  - Jaundice [Recovered/Resolved]
  - Serum ferritin increased [Recovering/Resolving]
  - Chills [Recovered/Resolved]
  - Thrombocytopenia [Recovered/Resolved]
  - Leukopenia [Recovered/Resolved]
  - Histiocytosis haematophagic [Recovered/Resolved]
  - Blood bilirubin increased [Recovering/Resolving]

NARRATIVE: CASE EVENT DATE: 20140401
